FAERS Safety Report 15232752 (Version 5)
Quarter: 2018Q3

REPORT INFORMATION
  Report Type: Report from Study
  Country: US (occurrence: US)
  Receive Date: 20180802
  Receipt Date: 20180924
  Transmission Date: 20181010
  Serious: Yes (Hospitalization, Other)
  Sender: FDA-Public Use
  Company Number: US-GILEAD-2018-0352577

PATIENT
  Age: 46 Year
  Sex: Male

DRUGS (4)
  1. ORENITRAM [Concomitant]
     Active Substance: TREPROSTINIL
     Dosage: 5 MG, TID
     Route: 065
  2. AMBRISENTAN [Suspect]
     Active Substance: AMBRISENTAN
     Indication: PRODUCT USED FOR UNKNOWN INDICATION
     Dosage: 10 MG, QD
     Route: 065
     Dates: start: 20170213
  3. REVATIO [Concomitant]
     Active Substance: SILDENAFIL CITRATE
  4. REMODULIN [Concomitant]
     Active Substance: TREPROSTINIL

REACTIONS (14)
  - Fungaemia [Recovering/Resolving]
  - Cholecystitis [Unknown]
  - Contusion [Unknown]
  - Migraine [Unknown]
  - Sepsis [Unknown]
  - Hypotension [Unknown]
  - Device malfunction [Recovered/Resolved]
  - Fungaemia [Unknown]
  - Skin disorder [Unknown]
  - Weight decreased [Unknown]
  - Dizziness [Unknown]
  - Device related infection [Unknown]
  - Dehydration [Unknown]
  - Central venous catheterisation [Unknown]

NARRATIVE: CASE EVENT DATE: 201808
